FAERS Safety Report 10582691 (Version 1)
Quarter: 2014Q4

REPORT INFORMATION
  Report Type: Spontaneous
  Country: FR (occurrence: FR)
  Receive Date: 20141113
  Receipt Date: 20141113
  Transmission Date: 20150529
  Serious: Yes (Other)
  Sender: FDA-Public Use
  Company Number: FR-009507513-1411FRA004328

PATIENT
  Age: 80 Year
  Sex: Male

DRUGS (21)
  1. AUGMENTIN [Suspect]
     Active Substance: AMOXICILLIN\CLAVULANATE POTASSIUM
     Dosage: 1 G, TID
     Route: 042
     Dates: start: 20140911, end: 20140917
  2. TAZOCILLINE [Suspect]
     Active Substance: PIPERACILLIN SODIUM\TAZOBACTAM SODIUM
     Dosage: 1 DF, TID
     Route: 041
     Dates: start: 20140917, end: 20140922
  3. HUMALOG [Concomitant]
     Active Substance: INSULIN LISPRO
     Dosage: 2 IU, TID
     Route: 058
     Dates: start: 20140912
  4. AMLOR [Suspect]
     Active Substance: AMLODIPINE BESYLATE
     Dosage: 5 MG, QD
     Route: 048
     Dates: start: 20140921, end: 20140925
  5. INVANZ [Concomitant]
     Active Substance: ERTAPENEM SODIUM
     Dosage: 1 DF, BID
     Dates: start: 20140924
  6. KARDEGIC [Concomitant]
     Active Substance: ASPIRIN LYSINE
     Dosage: 75 MG, QD
     Route: 048
     Dates: start: 20140912
  7. VANCOMYCINE SANDOZ [Suspect]
     Active Substance: VANCOMYCIN
     Dosage: 2 G, QD
     Route: 041
     Dates: start: 20140917, end: 20140922
  8. XATRAL [Concomitant]
     Active Substance: ALFUZOSIN
     Dosage: 10 MG, TID (ALSO REPORTED AS TOTAL DAILY DOSE 10 MG)
     Route: 048
     Dates: start: 20140911
  9. INEXIUM (ESOMEPRAZOLE SODIUM) [Concomitant]
     Active Substance: ESOMEPRAZOLE
     Dosage: GASTRO-RESISTANT TABLET / 20 MG, TID (ALSO REPORTED AS TOTAL DAILY DOSE 20 MG)
     Route: 048
     Dates: start: 20140911
  10. TAVANIC [Suspect]
     Active Substance: LEVOFLOXACIN
     Dosage: 500 MG, BID
     Route: 048
     Dates: start: 20140924, end: 20141010
  11. HEPARIN SODIUM. [Suspect]
     Active Substance: HEPARIN SODIUM
     Dosage: 7000 IU, TID
     Route: 041
     Dates: start: 20140911, end: 201410
  12. PREVISCAN [Suspect]
     Active Substance: FLUINDIONE
     Dosage: 10 MG, QD
     Route: 048
     Dates: start: 20140925, end: 20140928
  13. AZANTAC [Suspect]
     Active Substance: RANITIDINE HYDROCHLORIDE
     Dosage: 1 DF, BID
     Route: 041
     Dates: start: 20140912, end: 20141010
  14. TRIATEC (RAMIPRIL) [Concomitant]
     Active Substance: RAMIPRIL
     Dosage: 1 DF, BID
     Route: 048
     Dates: start: 20140918
  15. BACTRIM [Concomitant]
     Active Substance: SULFAMETHOXAZOLE\TRIMETHOPRIM
     Dosage: 1 DF, BID
     Route: 048
     Dates: start: 20140924
  16. TIAPRIDAL [Suspect]
     Active Substance: TIAPRIDE HYDROCHLORIDE
     Dosage: 50 MICROGRAM, QD
     Route: 041
     Dates: start: 20140912, end: 20140917
  17. LANTUS [Suspect]
     Active Substance: INSULIN GLARGINE
     Dosage: 14 IU, QD
     Route: 058
     Dates: start: 20140921, end: 20141001
  18. TAHOR [Concomitant]
     Active Substance: ATORVASTATIN CALCIUM
     Dosage: 80 MG, QD
     Route: 048
     Dates: start: 20140912
  19. IMIPENEM AND CILASTATIN [Suspect]
     Active Substance: CILASTATIN SODIUM\IMIPENEM
     Dosage: 2 X 500 MG, 4 TIMES A DAY
     Route: 041
     Dates: start: 20140922, end: 20140924
  20. AMIKACIN [Suspect]
     Active Substance: AMIKACIN
     Dosage: 1850MG, QD
     Route: 041
     Dates: start: 20140922, end: 20140925
  21. PLAVIX [Concomitant]
     Active Substance: CLOPIDOGREL BISULFATE
     Dosage: 75 MG, QD, STARTED FROM LONG TIME AGO
     Route: 048

REACTIONS (1)
  - Cutaneous vasculitis [Recovered/Resolved]

NARRATIVE: CASE EVENT DATE: 20141001
